FAERS Safety Report 8594576-0 (Version None)
Quarter: 2012Q3

REPORT INFORMATION
  Report Type: 
  Country: None (occurrence: None)
  Receive Date: 20120815
  Receipt Date: 20120810
  Transmission Date: 20120928
  Serious: No
  Sender: FDA-Public Use
  Company Number: DE-ELI_LILLY_AND_COMPANY-DE201208003070

PATIENT
  Age: 50 Year
  Sex: Male

DRUGS (2)
  1. ZYPREXA [Suspect]
     Dosage: 20 MG, UNKNOWN
     Route: 048
     Dates: start: 20120806
  2. ZYPREXA [Suspect]
     Dosage: 25 MG, UNKNOWN
     Route: 048
     Dates: start: 20120701

REACTIONS (3)
  - HAEMOGLOBIN ABNORMAL [None]
  - RED BLOOD CELL ABNORMALITY [None]
  - OVERDOSE [None]
